FAERS Safety Report 8716282 (Version 3)
Quarter: 2013Q4

REPORT INFORMATION
  Report Type: Spontaneous
  Country: GB (occurrence: GB)
  Receive Date: 20120810
  Receipt Date: 20131031
  Transmission Date: 20140711
  Serious: Yes (Life-Threatening)
  Sender: FDA-Public Use
  Company Number: GB-009507513-1208GBR001951

PATIENT
  Age: 66 Year
  Sex: Female
  Weight: 56 kg

DRUGS (6)
  1. EZETROL [Suspect]
     Dosage: 10 MG, QD
     Route: 048
  2. SULFAMETHOXAZOLE (+) TRIMETHOPRIM [Suspect]
     Dosage: 480 MG, QD
     Route: 048
     Dates: start: 20110701
  3. LANSOPRAZOLE [Suspect]
     Dosage: 30 MG, QD
     Route: 048
     Dates: start: 20091201, end: 20120112
  4. CINACALCET [Concomitant]
  5. TACROLIMUS [Concomitant]
  6. VALGANCICLOVIR HYDROCHLORIDE [Concomitant]

REACTIONS (1)
  - Neutropenia [Recovered/Resolved]
